FAERS Safety Report 20217362 (Version 1)
Quarter: 2021Q4

REPORT INFORMATION
  Report Type: Spontaneous
  Country: ES (occurrence: ES)
  Receive Date: 20211222
  Receipt Date: 20211222
  Transmission Date: 20220303
  Serious: Yes (Life-Threatening, Hospitalization)
  Sender: FDA-Public Use
  Company Number: None

PATIENT
  Age: 70 Year
  Sex: Male

DRUGS (4)
  1. ANIDULAFUNGIN [Suspect]
     Active Substance: ANIDULAFUNGIN
     Indication: Pneumonia necrotising
     Dosage: 100 MG, 1X/DAY
     Route: 041
     Dates: start: 20211020, end: 20211103
  2. MEROPENEM [Suspect]
     Active Substance: MEROPENEM
     Indication: Pneumonia necrotising
     Dosage: 2 G, 4X/DAY (EVERY 6 HOURS)
     Route: 042
     Dates: start: 20211020, end: 20211110
  3. ARGATROBAN [Suspect]
     Active Substance: ARGATROBAN
     Indication: Anticoagulant therapy
     Dosage: 250 MG, 1X/DAY
     Route: 041
     Dates: start: 20211102, end: 20211112
  4. DAPTOMYCIN [Suspect]
     Active Substance: DAPTOMYCIN
     Indication: Pneumonia necrotising
     Dosage: 500 MG, 1X/DAY
     Route: 042
     Dates: start: 20211020, end: 20211108

REACTIONS (2)
  - Agranulocytosis [Recovered/Resolved]
  - Off label use [Unknown]

NARRATIVE: CASE EVENT DATE: 20211020
